FAERS Safety Report 7064478-X (Version None)
Quarter: 2010Q4

REPORT INFORMATION
  Report Type: 
  Country: None (occurrence: None)
  Receive Date: 20101027
  Receipt Date: 20101015
  Transmission Date: 20110411
  Serious: Yes (Hospitalization)
  Sender: FDA-Public Use
  Company Number: IT-PFIZER INC-2007041809

PATIENT
  Age: 81 Year
  Sex: Male
  Weight: 37 kg

DRUGS (12)
  1. SUNITINIB MALATE [Suspect]
     Indication: METASTATIC RENAL CELL CARCINOMA
     Dosage: DAILY
     Route: 048
     Dates: start: 20070426, end: 20070503
  2. SUNITINIB MALATE [Suspect]
     Dosage: DAILY
     Route: 048
     Dates: start: 20070515, end: 20070516
  3. MS CONTIN [Concomitant]
     Dates: start: 20070508
  4. DELTACORTENE [Concomitant]
     Route: 048
     Dates: start: 20070424
  5. DOMPERIDONE [Concomitant]
     Route: 048
     Dates: start: 20070424
  6. LANSOX [Concomitant]
     Route: 048
     Dates: start: 20070424
  7. ADALAT [Concomitant]
     Route: 048
  8. ENSURE [Concomitant]
     Route: 048
     Dates: start: 20070424
  9. GLUCOSE [Concomitant]
     Indication: SUPPORTIVE CARE
     Dosage: 50 CC, 1X/DAY
     Route: 042
     Dates: start: 20070516, end: 20070516
  10. CERNEVIT-12 [Concomitant]
     Indication: SUPPORTIVE CARE
     Dosage: 1 VIAL
     Route: 042
     Dates: start: 20070515, end: 20070516
  11. CETIRIZINE HCL [Concomitant]
     Indication: RASH
     Dosage: 1 CP
     Route: 048
     Dates: start: 20070502, end: 20070515
  12. LACTULOSE [Concomitant]
     Indication: CONSTIPATION
     Dosage: UNK
     Route: 048
     Dates: start: 20070426, end: 20070508

REACTIONS (1)
  - DYSPNOEA [None]
